FAERS Safety Report 18472752 (Version 1)
Quarter: 2020Q4

REPORT INFORMATION
  Report Type: Spontaneous
  Country: US (occurrence: US)
  Receive Date: 20201106
  Receipt Date: 20201106
  Transmission Date: 20210114
  Serious: No
  Sender: FDA-Public Use
  Company Number: US-NEURELIS, INC.-2020NEU000090

PATIENT

DRUGS (1)
  1. VALTOCO [Suspect]
     Active Substance: DIAZEPAM
     Indication: PRODUCT USED FOR UNKNOWN INDICATION
     Dosage: 20 MG, UNK
     Route: 045

REACTIONS (5)
  - Nasal discomfort [Unknown]
  - Epistaxis [Unknown]
  - Lacrimation increased [Unknown]
  - Application site pain [Unknown]
  - Erythema [Unknown]
